FAERS Safety Report 10548728 (Version 1)
Quarter: 2014Q4

REPORT INFORMATION
  Report Type: Spontaneous
  Country: US (occurrence: US)
  Receive Date: 20141028
  Receipt Date: 20141028
  Transmission Date: 20150529
  Serious: No
  Sender: FDA-Public Use
  Company Number: US-BAUSCH-BL-2014-004975

PATIENT
  Age: 67 Year
  Sex: Female

DRUGS (2)
  1. PROLENSA [Interacting]
     Active Substance: BROMFENAC SODIUM
     Dosage: 1 DROP IN RIGHT EYE, TWICE DAILY
     Route: 061
     Dates: start: 20140804, end: 201409
  2. PROLENSA [Suspect]
     Active Substance: BROMFENAC SODIUM
     Indication: CATARACT OPERATION
     Dosage: 1 DROP IN RIGHT EYE, 4 TIMES ON THE FIRST DAY
     Route: 047
     Dates: start: 20140803, end: 20140803

REACTIONS (2)
  - Dizziness [Not Recovered/Not Resolved]
  - Oral discomfort [Not Recovered/Not Resolved]

NARRATIVE: CASE EVENT DATE: 20140803
